FAERS Safety Report 8327516-X (Version None)
Quarter: 2012Q2

REPORT INFORMATION
  Report Type: 
  Country: None (occurrence: None)
  Receive Date: 20120502
  Receipt Date: 20120424
  Transmission Date: 20120825
  Serious: Yes (Death, Hospitalization, Other)
  Sender: FDA-Public Use
  Company Number: US-BAYER-2011-024073

PATIENT
  Age: 22 Year
  Sex: Female
  Weight: 58.957 kg

DRUGS (6)
  1. VITALITY 6 [Concomitant]
  2. DROSPIRENONE AND ETHINYL ESTRADIOL [Suspect]
     Dates: start: 20090710, end: 20100915
  3. PROVEXCV [BIOFLAV,BROMELAINS,GINKGO BILOBA,PAPAIN,VACCIN MYRTILL,V [Concomitant]
  4. YAZ [Suspect]
     Dosage: UNK
     Dates: start: 20100915, end: 20101006
  5. VITAMIN TAB [Concomitant]
     Route: 048
  6. YAZ [Suspect]
     Dates: start: 20090710, end: 20100622

REACTIONS (9)
  - HYPERKALAEMIA [None]
  - PAIN [None]
  - PULMONARY EMBOLISM [None]
  - RESPIRATORY DISTRESS [None]
  - CARDIOGENIC SHOCK [None]
  - PULMONARY INFARCTION [None]
  - PULMONARY HYPERTENSION [None]
  - RESPIRATORY FAILURE [None]
  - ACUTE LUNG INJURY [None]
